FAERS Safety Report 18501081 (Version 1)
Quarter: 2020Q4

REPORT INFORMATION
  Report Type: Spontaneous
  Country: US (occurrence: US)
  Receive Date: 20201113
  Receipt Date: 20201113
  Transmission Date: 20210114
  Serious: No
  Sender: FDA-Public Use
  Company Number: US-009507513-2011USA007188

PATIENT
  Sex: Female
  Weight: 63.5 kg

DRUGS (1)
  1. LOTRISONE [Suspect]
     Active Substance: BETAMETHASONE DIPROPIONATE\CLOTRIMAZOLE
     Dosage: UNK

REACTIONS (2)
  - Dizziness [Unknown]
  - Drug hypersensitivity [Unknown]
